FAERS Safety Report 5655647-1 (Version None)
Quarter: 2008Q1

REPORT INFORMATION
  Report Type: 
  Country: None (occurrence: None)
  Receive Date: 20080212
  Receipt Date: 20071002
  Transmission Date: 20080703
  Serious: Yes (Life-Threatening)
  Sender: FDA-Public Use
  Company Number: MC200700621

PATIENT
  Age: 63 Year
  Sex: Male
  Weight: 82 kg

DRUGS (7)
  1. ANGIOMAX [Suspect]
     Indication: CORONARY ARTERY BYPASS
     Dosage: 1.5 MG/KG, BOLUS, INTRAVENOUS; 2.5 MG/KG, HR, IV DRIP; 50 MG, BOLUS, INTRVENOUS
     Route: 040
     Dates: start: 20070921, end: 20070921
  2. ANGIOMAX [Suspect]
     Indication: MITRAL VALVE REPLACEMENT
     Dosage: 1.5 MG/KG, BOLUS, INTRAVENOUS; 2.5 MG/KG, HR, IV DRIP; 50 MG, BOLUS, INTRVENOUS
     Route: 040
     Dates: start: 20070921, end: 20070921
  3. ANGIOMAX [Suspect]
     Indication: CORONARY ARTERY BYPASS
     Dosage: 1.5 MG/KG, BOLUS, INTRAVENOUS; 2.5 MG/KG, HR, IV DRIP; 50 MG, BOLUS, INTRVENOUS
     Route: 040
     Dates: start: 20070921, end: 20070921
  4. ANGIOMAX [Suspect]
     Indication: MITRAL VALVE REPLACEMENT
     Dosage: 1.5 MG/KG, BOLUS, INTRAVENOUS; 2.5 MG/KG, HR, IV DRIP; 50 MG, BOLUS, INTRVENOUS
     Route: 040
     Dates: start: 20070921, end: 20070921
  5. ANGIOMAX [Suspect]
     Indication: CORONARY ARTERY BYPASS
     Dosage: 1.5 MG/KG, BOLUS, INTRAVENOUS; 2.5 MG/KG, HR, IV DRIP; 50 MG, BOLUS, INTRVENOUS
     Route: 040
     Dates: start: 20070921, end: 20070921
  6. ANGIOMAX [Suspect]
     Indication: MITRAL VALVE REPLACEMENT
     Dosage: 1.5 MG/KG, BOLUS, INTRAVENOUS; 2.5 MG/KG, HR, IV DRIP; 50 MG, BOLUS, INTRVENOUS
     Route: 040
     Dates: start: 20070921, end: 20070921
  7. PLAVIX [Suspect]

REACTIONS (2)
  - COAGULATION TIME ABNORMAL [None]
  - HAEMORRHAGE [None]
